FAERS Safety Report 5913395-4 (Version None)
Quarter: 2008Q4

REPORT INFORMATION
  Report Type: 
  Country: None (occurrence: None)
  Receive Date: 20081008
  Receipt Date: 20081008
  Transmission Date: 20090506
  Serious: Yes (Other)
  Sender: FDA-Public Use
  Company Number: None

PATIENT
  Sex: Female
  Weight: 58.9676 kg

DRUGS (1)
  1. LIFE'S FORTUNE MULTI-VITAMIN + MINERAL [Suspect]
     Indication: VITAMIN SUPPLEMENTATION
     Dosage: 1 VITAMIN ONCE A DAY
     Dates: start: 20080904

REACTIONS (6)
  - DIZZINESS [None]
  - HEADACHE [None]
  - HYPOAESTHESIA [None]
  - LETHARGY [None]
  - REGURGITATION [None]
  - THYROID DISORDER [None]
